FAERS Safety Report 17116539 (Version 1)
Quarter: 2019Q4

REPORT INFORMATION
  Report Type: Spontaneous
  Country: GB (occurrence: US)
  Receive Date: 20191205
  Receipt Date: 20191205
  Transmission Date: 20200122
  Serious: No
  Sender: FDA-Public Use
  Company Number: US-ASTELLAS-2019US004798

PATIENT
  Age: 77 Year
  Sex: Female

DRUGS (4)
  1. SYNTHROID [Concomitant]
     Active Substance: LEVOTHYROXINE SODIUM
     Indication: HYPOTHYROIDISM
     Dosage: UNK, UNKNOWN FREQ.
     Route: 065
  2. TARCEVA [Suspect]
     Active Substance: ERLOTINIB HYDROCHLORIDE
     Indication: LUNG NEOPLASM MALIGNANT
     Dosage: 100 MG, ONCE DAILY (1 TABLET EVERY 6 HRS AS NEEDED, TOOK ONCE AT NIGHT)
     Route: 065
     Dates: start: 201809, end: 201810
  3. LISINOPRIL. [Concomitant]
     Active Substance: LISINOPRIL
     Indication: PRODUCT USED FOR UNKNOWN INDICATION
     Dosage: UNK, UNKNOWN FREQ.
     Route: 065
  4. DILTIAZEM. [Concomitant]
     Active Substance: DILTIAZEM
     Indication: PRODUCT USED FOR UNKNOWN INDICATION
     Dosage: UNK, UNKNOWN FREQ.
     Route: 065

REACTIONS (16)
  - Hyperaesthesia [Recovering/Resolving]
  - Pruritus [Recovering/Resolving]
  - Acne [Recovering/Resolving]
  - Heart rate increased [Recovering/Resolving]
  - Alopecia [Recovering/Resolving]
  - Muscle rupture [Recovering/Resolving]
  - Pain [Recovering/Resolving]
  - Nail discolouration [Recovering/Resolving]
  - Rash [Recovering/Resolving]
  - Sensation of foreign body [Recovering/Resolving]
  - Stomatitis [Recovering/Resolving]
  - Blood pressure fluctuation [Recovering/Resolving]
  - Heart rate irregular [Recovering/Resolving]
  - Visual impairment [Recovering/Resolving]
  - Asthenia [Recovering/Resolving]
  - Neuropathy peripheral [Recovering/Resolving]

NARRATIVE: CASE EVENT DATE: 201809
